FAERS Safety Report 7426012-1 (Version None)
Quarter: 2011Q2

REPORT INFORMATION
  Report Type: 
  Country: None (occurrence: None)
  Receive Date: 20110420
  Receipt Date: 20101109
  Transmission Date: 20111010
  Serious: Yes (Other)
  Sender: FDA-Public Use
  Company Number: US-BAYER-201026825NA

PATIENT
  Age: 40 Year
  Sex: Female
  Weight: 124.72 kg

DRUGS (6)
  1. YASMIN [Suspect]
     Indication: ORAL CONTRACEPTION
     Dosage: UNK
     Dates: start: 20040901, end: 20090101
  2. YASMIN [Suspect]
     Indication: OVARIAN CYST
  3. LISINOPRIL [Concomitant]
     Indication: HYPERTENSION
     Dosage: 5 MG, QD
     Route: 048
     Dates: start: 20060101
  4. NYSTATIN [Concomitant]
     Indication: FUNGAL INFECTION
     Dosage: UNK UNK, BID
     Route: 061
     Dates: start: 20080301
  5. YASMIN [Suspect]
     Indication: POLYCYSTIC OVARIES
  6. HYDROCHLOROTHIAZIDE [Concomitant]
     Indication: HYPERTENSION
     Dosage: 12.5 MG, QD
     Route: 048
     Dates: start: 20060101

REACTIONS (3)
  - CHOLELITHIASIS [None]
  - HEPATIC CIRRHOSIS [None]
  - GALLBLADDER DISORDER [None]
